FAERS Safety Report 8790936 (Version 1)
Quarter: 2012Q4

REPORT INFORMATION
  Report Type: Spontaneous
  Country: US (occurrence: None)
  Receive Date: 20120913
  Receipt Date: 20120913
  Transmission Date: 20130627
  Serious: Yes (Hospitalization, Other)
  Sender: FDA-Public Use
  Company Number: None

PATIENT
  Age: 53 Year
  Sex: Male
  Weight: 102.06 kg

DRUGS (1)
  1. REQUIP [Suspect]
     Indication: PARKINSON^S DISEASE
     Route: 048
     Dates: start: 20040101, end: 20120912

REACTIONS (7)
  - Cardiac disorder [None]
  - Cerebrovascular accident [None]
  - Pneumonia [None]
  - Tuberculosis [None]
  - Delusion [None]
  - Paranoia [None]
  - Economic problem [None]
